FAERS Safety Report 19177737 (Version 2)
Quarter: 2021Q3

REPORT INFORMATION
  Report Type: Spontaneous
  Country: NL (occurrence: NL)
  Receive Date: 20210426
  Receipt Date: 20210706
  Transmission Date: 20211014
  Serious: Yes (Life-Threatening, Hospitalization)
  Sender: FDA-Public Use
  Company Number: NL-SUN PHARMACEUTICAL INDUSTRIES LTD-2021RR-292957

PATIENT
  Age: 31 Year
  Sex: Female
  Weight: 57 kg

DRUGS (3)
  1. COLECALCIFEROL CAPSULE    400IE / BRAND NAME NOT SPECIFIEDCOLECALCI... [Concomitant]
     Indication: PRODUCT USED FOR UNKNOWN INDICATION
     Dosage: CAPSULE, 400 UNITS ()
     Route: 065
  2. FINGOLIMOD. [Suspect]
     Active Substance: FINGOLIMOD
     Indication: MULTIPLE SCLEROSIS
     Dosage: 0.5MG ONCE DAILY FOR 2?3 MONTHS FOLLOWED BY 3X / WEEK FOR 2 YEARS
     Route: 065
  3. FINGOLIMOD. [Suspect]
     Active Substance: FINGOLIMOD
     Dosage: 0.5MG ONCE DAILY FOR 2?3 MONTHS FOLLOWED BY 3X / WEEK FOR 2 YEARS
     Route: 065
     Dates: start: 20181105

REACTIONS (1)
  - Precursor T-lymphoblastic lymphoma/leukaemia [Not Recovered/Not Resolved]

NARRATIVE: CASE EVENT DATE: 20210319
